FAERS Safety Report 4406371-4 (Version None)
Quarter: 2004Q3

REPORT INFORMATION
  Report Type: 
  Country: None (occurrence: None)
  Receive Date: 20040723
  Receipt Date: 20030709
  Transmission Date: 20050211
  Serious: No
  Sender: FDA-Public Use
  Company Number: US-GLAXOSMITHKLINE-A0416066A

PATIENT
  Age: 73 Year
  Sex: Female

DRUGS (5)
  1. AVANDIA [Suspect]
     Dosage: 4MG PER DAY
     Route: 048
     Dates: start: 20030623, end: 20030707
  2. GLYBURIDE [Concomitant]
     Dosage: 10MG TWICE PER DAY
  3. METFORMIN HCL [Concomitant]
     Dosage: 850MG THREE TIMES PER DAY
  4. VERAPAMIL [Concomitant]
     Dosage: 240MG TWICE PER DAY
     Route: 048
  5. LIPITOR [Concomitant]

REACTIONS (2)
  - ASTHENIA [None]
  - HYPOGLYCAEMIA [None]
